FAERS Safety Report 7825999-2 (Version None)
Quarter: 2011Q4

REPORT INFORMATION
  Report Type: 
  Country: None (occurrence: None)
  Receive Date: 20111019
  Receipt Date: 20111010
  Transmission Date: 20120403
  Serious: Yes (Other)
  Sender: FDA-Public Use
  Company Number: US-ASTRAZENECA-2011SE50491

PATIENT
  Age: 62 Year
  Sex: Female

DRUGS (1)
  1. CRESTOR [Suspect]
     Route: 048

REACTIONS (9)
  - HAEMATURIA [None]
  - DIVERTICULUM INTESTINAL [None]
  - TYPE 2 DIABETES MELLITUS [None]
  - OBESITY [None]
  - KIDNEY INFECTION [None]
  - HYPERLIPIDAEMIA [None]
  - FLANK PAIN [None]
  - POLLAKIURIA [None]
  - ESSENTIAL HYPERTENSION [None]
